FAERS Safety Report 7411922-1 (Version None)
Quarter: 2011Q2

REPORT INFORMATION
  Report Type: 
  Country: None (occurrence: None)
  Receive Date: 20110413
  Receipt Date: 20110407
  Transmission Date: 20111010
  Serious: Yes (Hospitalization)
  Sender: FDA-Public Use
  Company Number: ES-SHIRE-SPV1-2011-00575

PATIENT
  Sex: Male
  Weight: 78 kg

DRUGS (8)
  1. XAGRID [Suspect]
     Indication: ESSENTIAL THROMBOCYTHAEMIA
     Dosage: 5.5 MG DAILY, (2 MG-2MG-1.5MG)
     Route: 048
     Dates: start: 20110102, end: 20110107
  2. HYDREA [Concomitant]
     Indication: ESSENTIAL THROMBOCYTHAEMIA
     Dosage: 1 UNK, 1X/DAY:QD
     Route: 048
     Dates: start: 20100101
  3. ATORVASTATIN CALCIUM [Concomitant]
     Indication: DYSLIPIDAEMIA
     Dosage: 20 MG, 1X/DAY:QD
     Route: 065
  4. INSULIN [Concomitant]
     Indication: DIABETES MELLITUS
     Dosage: UNK UNK, UNKNOWN
     Route: 065
  5. XAGRID [Suspect]
     Dosage: 5 MG DAILY, (2MG-1.5MG-1.5MG)
     Dates: start: 20101223, end: 20110102
  6. HYDREA [Concomitant]
     Dosage: 16 TABLETS WEEKLY PROGRESSIVELY DECREASED TO 1 TABLET DAILY
     Route: 048
     Dates: start: 20070101, end: 20100101
  7. XAGRID [Suspect]
     Dosage: 4.5 MG DAILY, (1.5MG-1.5MG-1.5MG)
     Dates: start: 20100921, end: 20101223
  8. ASPIRIN [Concomitant]
     Indication: ESSENTIAL THROMBOCYTHAEMIA
     Dosage: 100 MG, 1X/DAY:QD
     Route: 065

REACTIONS (1)
  - PANCYTOPENIA [None]
